FAERS Safety Report 17022794 (Version 1)
Quarter: 2019Q4

REPORT INFORMATION
  Report Type: Spontaneous
  Country: BR (occurrence: BR)
  Receive Date: 20191112
  Receipt Date: 20191112
  Transmission Date: 20200122
  Serious: Yes (Other)
  Sender: FDA-Public Use
  Company Number: NVSC2019BR029039

PATIENT
  Sex: Female

DRUGS (1)
  1. TRAVATAN [Suspect]
     Active Substance: TRAVOPROST
     Indication: PRODUCT USED FOR UNKNOWN INDICATION
     Dosage: USED TRAVATAN FOR ABOUT 2 YEARS, STOPED APPROXIMATELY 5 YEARS AGO
     Route: 065

REACTIONS (3)
  - Glaucoma [Unknown]
  - Drug ineffective [Unknown]
  - Cataract [Unknown]
